FAERS Safety Report 16978264 (Version 1)
Quarter: 2019Q4

REPORT INFORMATION
  Report Type: Spontaneous
  Country: FR (occurrence: FR)
  Receive Date: 20191031
  Receipt Date: 20191031
  Transmission Date: 20200122
  Serious: Yes (Hospitalization)
  Sender: FDA-Public Use
  Company Number: FR-ROCHE-2455661

PATIENT
  Age: 15 Year
  Sex: Male

DRUGS (2)
  1. ARTANE [Suspect]
     Active Substance: TRIHEXYPHENIDYL HYDROCHLORIDE
     Indication: DRUG USE DISORDER
     Route: 048
     Dates: start: 20180315
  2. RIVOTRIL [Suspect]
     Active Substance: CLONAZEPAM
     Indication: DRUG USE DISORDER
     Route: 048
     Dates: start: 20180315

REACTIONS (1)
  - Brief psychotic disorder with marked stressors [Not Recovered/Not Resolved]

NARRATIVE: CASE EVENT DATE: 20180315
